FAERS Safety Report 7927099-X (Version None)
Quarter: 2011Q4

REPORT INFORMATION
  Report Type: 
  Country: None (occurrence: None)
  Receive Date: 20111118
  Receipt Date: 20111109
  Transmission Date: 20120403
  Serious: Yes (Other)
  Sender: FDA-Public Use
  Company Number: IT-JNJFOC-20111105645

PATIENT
  Age: 39 Year
  Sex: Female

DRUGS (6)
  1. METHYLPREDNISOLONE [Concomitant]
     Indication: PREMEDICATION
     Route: 048
     Dates: start: 20080410, end: 20080410
  2. FOLINA [Concomitant]
     Route: 065
     Dates: start: 20050101
  3. METHOTREXATE [Concomitant]
     Route: 048
     Dates: start: 20050101
  4. ACETAMINOPHEN [Concomitant]
     Indication: PREMEDICATION
     Route: 048
     Dates: start: 20080410, end: 20080410
  5. RAMIPRIL [Concomitant]
     Indication: PREMEDICATION
     Route: 030
     Dates: start: 20080410, end: 20080410
  6. REMICADE [Suspect]
     Indication: RHEUMATOID ARTHRITIS
     Route: 042
     Dates: start: 20070604, end: 20080410

REACTIONS (2)
  - INFUSION RELATED REACTION [None]
  - DYSHIDROSIS [None]
